FAERS Safety Report 12572023 (Version 13)
Quarter: 2017Q3

REPORT INFORMATION
  Report Type: Report from Study
  Country: PL (occurrence: PL)
  Receive Date: 20160719
  Receipt Date: 20170803
  Transmission Date: 20171127
  Serious: Yes (Hospitalization)
  Sender: FDA-Public Use
  Company Number: PHHO2016PL010025

PATIENT
  Age: 8 Year
  Sex: Female
  Weight: 31 kg

DRUGS (8)
  1. ACZ885 [Suspect]
     Active Substance: CANAKINUMAB
     Indication: STILL^S DISEASE
     Dosage: 4 MG/KG, QMO
     Route: 058
     Dates: start: 20141212, end: 20160520
  2. METHYLPREDNISOLON [Concomitant]
     Active Substance: METHYLPREDNISOLONE
     Dosage: UNK
     Route: 065
     Dates: start: 201309
  3. METHYLPREDNISOLON [Concomitant]
     Active Substance: METHYLPREDNISOLONE
     Dosage: 0.3 MG/KG, UNK
     Route: 065
     Dates: start: 20160627
  4. METHYLPREDNISOLON [Concomitant]
     Active Substance: METHYLPREDNISOLONE
     Dosage: 8 MG, UNK
     Route: 065
  5. METHYLPREDNISOLON [Concomitant]
     Active Substance: METHYLPREDNISOLONE
     Dosage: UNK
     Route: 065
     Dates: start: 201002, end: 201303
  6. METHOTREXATE. [Suspect]
     Active Substance: METHOTREXATE
     Indication: STILL^S DISEASE
     Dosage: 15 MG, QW
     Route: 058
     Dates: start: 20140117, end: 20160627
  7. METHYLPREDNISOLON [Concomitant]
     Active Substance: METHYLPREDNISOLONE
     Dosage: 4 MG, UNK
     Route: 048
     Dates: start: 20150218, end: 20160606
  8. METHYLPREDNISOLON [Concomitant]
     Active Substance: METHYLPREDNISOLONE
     Indication: STILL^S DISEASE
     Dosage: UNK
     Route: 065
     Dates: end: 201002

REACTIONS (1)
  - Alveolar proteinosis [Not Recovered/Not Resolved]

NARRATIVE: CASE EVENT DATE: 20160501
